FAERS Safety Report 8479785-3 (Version None)
Quarter: 2012Q2

REPORT INFORMATION
  Report Type: 
  Country: None (occurrence: None)
  Receive Date: 20120629
  Receipt Date: 20120621
  Transmission Date: 20120825
  Serious: Yes (Other)
  Sender: FDA-Public Use
  Company Number: US-ABBOTT-12P-163-0948933-00

PATIENT
  Sex: Female

DRUGS (6)
  1. ESTRADIOL [Concomitant]
     Indication: MENOPAUSE
     Dates: start: 19920101, end: 20120401
  2. CLONAZEPAM [Concomitant]
     Indication: RESTLESS LEGS SYNDROME
  3. PROGESTERONE [Concomitant]
     Indication: MENOPAUSE
     Dates: start: 19920101, end: 20120401
  4. METHOTREXATE [Concomitant]
     Indication: RHEUMATOID ARTHRITIS
     Dates: start: 20110101, end: 20120401
  5. HUMIRA [Suspect]
     Indication: RHEUMATOID ARTHRITIS
     Route: 058
     Dates: start: 20110101, end: 20120412
  6. CALCIUM [Concomitant]
     Indication: PRODUCT USED FOR UNKNOWN INDICATION

REACTIONS (4)
  - MAMMOGRAM ABNORMAL [None]
  - BREAST CANCER [None]
  - POST PROCEDURAL HAEMORRHAGE [None]
  - BREAST HYPERPLASIA [None]
